FAERS Safety Report 7110625-0 (Version None)
Quarter: 2010Q4

REPORT INFORMATION
  Report Type: 
  Country: None (occurrence: None)
  Receive Date: 20101118
  Receipt Date: 20101108
  Transmission Date: 20110411
  Serious: Yes (Other)
  Sender: FDA-Public Use
  Company Number: US-PFIZER INC-US-WYE-H18277710

PATIENT
  Sex: Female
  Weight: 68.481 kg

DRUGS (3)
  1. PRISTIQ [Suspect]
     Indication: DEPRESSION
     Dosage: 100MG/DAY
     Route: 048
     Dates: start: 20100928
  2. PRISTIQ [Suspect]
     Dosage: 50 MG, 1X/DAY
     Dates: start: 20101006, end: 20101019
  3. SIMVASTATIN [Concomitant]
     Indication: HYPERLIPIDAEMIA
     Dosage: 40MG/DAY
     Route: 048
     Dates: start: 20100623

REACTIONS (1)
  - SUICIDAL IDEATION [None]
